FAERS Safety Report 7376310 (Version 4)
Quarter: 2012Q4

REPORT INFORMATION
  Report Type: 
  Country: US (occurrence: US)
  Receive Date: 20100504
  Receipt Date: 20120912
  Transmission Date: 20130627
  Serious: Yes (Hospitalization)
  Sender: FDA-Public Use
  Company Number: US-BAYER-201020733NA

PATIENT
  Age: 44 Year
  Sex: Female
  Weight: 65.76 kg

DRUGS (3)
  1. YASMIN [Suspect]
     Dosage: UNK
     Route: 048
     Dates: start: 200808, end: 200901
  2. YAZ [Suspect]
     Dosage: UNK
     Dates: start: 200908, end: 201002
  3. OCELLA [Suspect]
     Dosage: UNK
     Dates: start: 200801, end: 200802

REACTIONS (9)
  - Cholecystectomy [Unknown]
  - Pain [Unknown]
  - Abdominal distension [None]
  - Flatulence [None]
  - Dyspepsia [None]
  - Constipation [None]
  - Diarrhoea [None]
  - Anxiety [None]
  - Depression [None]
